FAERS Safety Report 12286346 (Version 3)
Quarter: 2019Q3

REPORT INFORMATION
  Report Type: Spontaneous
  Country: US (occurrence: US)
  Receive Date: 20160420
  Receipt Date: 20190702
  Transmission Date: 20191004
  Serious: Yes (Other)
  Sender: FDA-Public Use
  Company Number: US-PFIZER INC-2016203775

PATIENT
  Age: 65 Year
  Sex: Female

DRUGS (2)
  1. IBRANCE [Suspect]
     Active Substance: PALBOCICLIB
     Indication: BREAST CANCER METASTATIC
     Dosage: 125 MG, UNK
     Dates: start: 201512, end: 201512
  2. IBRANCE [Suspect]
     Active Substance: PALBOCICLIB
     Dosage: 100 MG, UNK
     Dates: start: 201512

REACTIONS (7)
  - Thrombocytopenia [Unknown]
  - Full blood count decreased [Unknown]
  - Neutropenia [Unknown]
  - Fatigue [Unknown]
  - Madarosis [Unknown]
  - White blood cell count decreased [Unknown]
  - Alopecia [Unknown]
